FAERS Safety Report 6210626-0 (Version None)
Quarter: 2009Q2

REPORT INFORMATION
  Report Type: 
  Country: None (occurrence: None)
  Receive Date: 20090529
  Receipt Date: 20090529
  Transmission Date: 20091009
  Serious: Yes (Disabling)
  Sender: FDA-Public Use
  Company Number: None

PATIENT
  Age: 35 Year
  Sex: Female
  Weight: 61.2356 kg

DRUGS (1)
  1. MIRENA [Suspect]
     Indication: CONTRACEPTION
     Dosage: INTRA-UTERINE
     Route: 015
     Dates: start: 20090430, end: 20090528

REACTIONS (4)
  - DEVICE DISLOCATION [None]
  - HAEMORRHAGE [None]
  - MUSCLE SPASMS [None]
  - UTERINE RUPTURE [None]
